FAERS Safety Report 8916130 (Version 1)
Quarter: 2012Q4

REPORT INFORMATION
  Report Type: 
  Country: US (occurrence: US)
  Receive Date: 20121120
  Receipt Date: 20121120
  Transmission Date: 20130627
  Serious: Yes (Other)
  Sender: FDA-Public Use
  Company Number: PHEH2012US022508

PATIENT
  Sex: Female

DRUGS (1)
  1. GLEEVEC [Suspect]
     Indication: GASTRIC CANCER
     Dosage: 400 mg, QD
     Route: 048

REACTIONS (4)
  - Eye pruritus [Unknown]
  - Ocular hyperaemia [Unknown]
  - Swollen tongue [Unknown]
  - Swelling [Unknown]
